FAERS Safety Report 13237853 (Version 3)
Quarter: 2017Q1

REPORT INFORMATION
  Report Type: Spontaneous
  Country: FR (occurrence: FR)
  Receive Date: 20170216
  Receipt Date: 20170227
  Transmission Date: 20170428
  Serious: Yes (Other)
  Sender: FDA-Public Use
  Company Number: FR-UCBSA-2016039767

PATIENT
  Age: 34 Year
  Sex: Female

DRUGS (1)
  1. KEPPRA [Suspect]
     Active Substance: LEVETIRACETAM
     Indication: IDIOPATHIC GENERALISED EPILEPSY
     Dosage: 1000 MG, ONCE DAILY (QD)
     Route: 048

REACTIONS (3)
  - Caesarean section [Unknown]
  - Breast feeding [Unknown]
  - Pregnancy [Unknown]

NARRATIVE: CASE EVENT DATE: 201603
